FAERS Safety Report 5299808-2 (Version None)
Quarter: 2007Q2

REPORT INFORMATION
  Report Type: 
  Country: None (occurrence: None)
  Receive Date: 20070417
  Receipt Date: 20070406
  Transmission Date: 20071010
  Serious: Yes (Other)
  Sender: FDA-Public Use
  Company Number: FR-PFIZER INC-2006145812

PATIENT
  Age: 18 Year
  Sex: Female

DRUGS (1)
  1. GENOTONORM [Suspect]
     Indication: TURNER'S SYNDROME
     Dosage: DAILY DOSE:2MG

REACTIONS (1)
  - HEPATITIS [None]
